FAERS Safety Report 14603536 (Version 1)
Quarter: 2018Q1

REPORT INFORMATION
  Report Type: Spontaneous
  Country: US (occurrence: US)
  Receive Date: 20180306
  Receipt Date: 20180306
  Transmission Date: 20180509
  Serious: Yes (Death)
  Sender: FDA-Public Use
  Company Number: US-JNJFOC-20180304007

PATIENT
  Sex: Female

DRUGS (11)
  1. IRBESARTAN AND HYDROCHLOROTHIAZIDE [Concomitant]
     Active Substance: HYDROCHLOROTHIAZIDE\IRBESARTAN
     Dosage: 300 MG/12.5 MG
  2. ATORVASTATIN [Concomitant]
     Active Substance: ATORVASTATIN
  3. GLIPIZIDE. [Concomitant]
     Active Substance: GLIPIZIDE
  4. INSULIN DETEMIR [Concomitant]
     Active Substance: INSULIN DETEMIR
  5. METOPROLOL. [Concomitant]
     Active Substance: METOPROLOL
  6. AMITRIPTYLINE [Concomitant]
     Active Substance: AMITRIPTYLINE
  7. GUANFACINE. [Concomitant]
     Active Substance: GUANFACINE
  8. HYDROXYZINE [Concomitant]
     Active Substance: HYDROXYZINE HYDROCHLORIDE
  9. IMBRUVICA [Suspect]
     Active Substance: IBRUTINIB
     Indication: LYMPHOCYTIC LEUKAEMIA
     Route: 048
  10. OMEPRAZOLE. [Concomitant]
     Active Substance: OMEPRAZOLE
  11. REPAGLINIDE. [Concomitant]
     Active Substance: REPAGLINIDE

REACTIONS (1)
  - Death [Fatal]
